FAERS Safety Report 8406884-4 (Version None)
Quarter: 2012Q2

REPORT INFORMATION
  Report Type: 
  Country: None (occurrence: None)
  Receive Date: 20120529
  Receipt Date: 20041221
  Transmission Date: 20120825
  Serious: Yes (Hospitalization)
  Sender: FDA-Public Use
  Company Number: 02100-JPN-05-0014

PATIENT
  Age: 77 Year
  Sex: Female

DRUGS (3)
  1. DOGMATYL (SULPIRIDE) [Concomitant]
  2. MEILAX (ETHYL LOFLAZEPATE) [Concomitant]
  3. PLETAL [Suspect]
     Indication: LACUNAR INFARCTION
     Dosage: 100 MG, BID, ORAL
     Route: 048
     Dates: start: 20040206, end: 20040806

REACTIONS (3)
  - DEHYDRATION [None]
  - DIARRHOEA [None]
  - NO THERAPEUTIC RESPONSE [None]
